FAERS Safety Report 21630500 (Version 4)
Quarter: 2024Q3

REPORT INFORMATION
  Report Type: Report from Study
  Country: US (occurrence: US)
  Receive Date: 20221123
  Receipt Date: 20240822
  Transmission Date: 20241016
  Serious: Yes (Hospitalization, Other)
  Sender: PAREXEL
  Company Number: US-AVEO ONCOLOGY-2022-AVEO-US000519

PATIENT

DRUGS (1)
  1. FOTIVDA [Suspect]
     Active Substance: TIVOZANIB HYDROCHLORIDE
     Indication: Renal cell carcinoma
     Dosage: 1.34 MG, DAILY FOR 21 DAYS WITH 7 DAYS OFF (28-DAY CYCLE)
     Route: 048
     Dates: start: 20221025, end: 202212

REACTIONS (22)
  - Headache [Unknown]
  - Shunt infection [Unknown]
  - Muscle spasms [Unknown]
  - Abdominal pain upper [Unknown]
  - Gastroenteritis viral [Not Recovered/Not Resolved]
  - Vomiting [Unknown]
  - Diarrhoea [Unknown]
  - Hypertension [Unknown]
  - Anxiety [Unknown]
  - Urine abnormality [Unknown]
  - Asthenia [Unknown]
  - Dizziness [Unknown]
  - Gait disturbance [Unknown]
  - Dysstasia [Unknown]
  - Presyncope [Unknown]
  - Decreased appetite [Unknown]
  - Feeling jittery [Unknown]
  - Hypersomnia [Unknown]
  - Haematuria [Unknown]
  - Dysuria [Unknown]
  - Chest pain [Unknown]
  - Feeding disorder [Unknown]

NARRATIVE: CASE EVENT DATE: 20221101
